FAERS Safety Report 7624076-3 (Version None)
Quarter: 2011Q3

REPORT INFORMATION
  Report Type: 
  Country: None (occurrence: None)
  Receive Date: 20110720
  Receipt Date: 20110715
  Transmission Date: 20111222
  Serious: Yes (Life-Threatening)
  Sender: FDA-Public Use
  Company Number: PHHY2011US64416

PATIENT
  Sex: Female
  Weight: 68 kg

DRUGS (3)
  1. KLONOPIN [Suspect]
     Indication: ANXIETY
     Dosage: 1 MG, BID
     Dates: start: 20110317
  2. RITALIN [Suspect]
     Dosage: 10 MG, QID
     Dates: start: 20110415
  3. REBIF [Suspect]
     Indication: ATTENTION DEFICIT/HYPERACTIVITY DISORDER
     Dosage: 8.8 MCG, 3 IN 1 WEEK
     Route: 058
     Dates: start: 20110318, end: 20110503

REACTIONS (2)
  - DEPRESSION [None]
  - SUICIDAL IDEATION [None]
